FAERS Safety Report 20234007 (Version 5)
Quarter: 2023Q4

REPORT INFORMATION
  Report Type: Spontaneous
  Country: US (occurrence: US)
  Receive Date: 20211227
  Receipt Date: 20231220
  Transmission Date: 20240109
  Serious: No
  Sender: FDA-Public Use
  Company Number: US-PFIZER INC-2021561233

PATIENT
  Age: 74 Year
  Sex: Female

DRUGS (3)
  1. IBRANCE [Suspect]
     Active Substance: PALBOCICLIB
     Indication: Neoplasm malignant
     Dosage: UNK
  2. IBRANCE [Suspect]
     Active Substance: PALBOCICLIB
     Dosage: ON DAYS 1-21 OF EACH 28-DAY CYCLE
     Route: 048
  3. IBRANCE [Suspect]
     Active Substance: PALBOCICLIB
     Dosage: TAKE 1 100 MG TABLET DAILY DAYS 1-22 DAYS 23-28 OFF
     Route: 048

REACTIONS (1)
  - Illness [Unknown]
